FAERS Safety Report 5226310-6 (Version None)
Quarter: 2007Q1

REPORT INFORMATION
  Report Type: 
  Country: None (occurrence: None)
  Receive Date: 20070201
  Receipt Date: 20070125
  Transmission Date: 20070707
  Serious: Yes (Hospitalization)
  Sender: FDA-Public Use
  Company Number: US-ELI_LILLY_AND_COMPANY-US200609006467

PATIENT
  Age: 35 Year
  Sex: Female
  Weight: 96.598 kg

DRUGS (7)
  1. QUETIAPINE FUMARATE [Concomitant]
     Dates: start: 20050101
  2. CHLORPROMAZINE [Concomitant]
     Dates: start: 20050101
  3. DEPAKOTE [Concomitant]
     Dates: start: 20050101
  4. LITHIUM CARBONATE [Concomitant]
     Dates: start: 20050101
  5. FLUOXETINE [Concomitant]
     Dates: start: 20050101
  6. PAROXETINE HCL [Concomitant]
     Dates: start: 20050101
  7. ZYPREXA [Suspect]
     Indication: DEPRESSION
     Dosage: 5 MG, UNK
     Dates: start: 20040101, end: 20050101

REACTIONS (4)
  - CARDIAC DISORDER [None]
  - DIABETES MELLITUS [None]
  - HYPERTENSION [None]
  - POLYURIA [None]
